FAERS Safety Report 6534741-7 (Version None)
Quarter: 2010Q1

REPORT INFORMATION
  Report Type: 
  Country: None (occurrence: None)
  Receive Date: 20100112
  Receipt Date: 20091230
  Transmission Date: 20100710
  Serious: No
  Sender: FDA-Public Use
  Company Number: GB-PFIZER INC-2009309483

PATIENT

DRUGS (2)
  1. VARENICLINE TARTRATE [Suspect]
     Dosage: 0.5 MG, 2X/DAY
     Route: 064
     Dates: start: 20080714, end: 20080723
  2. NORETHISTERONE [Suspect]
     Dosage: 350 UG, UNK
     Route: 064
     Dates: start: 20080207

REACTIONS (1)
  - DRUG EXPOSURE DURING PREGNANCY [None]
